FAERS Safety Report 5592848-5 (Version None)
Quarter: 2008Q1

REPORT INFORMATION
  Report Type: 
  Country: None (occurrence: None)
  Receive Date: 20080114
  Receipt Date: 20080108
  Transmission Date: 20080703
  Serious: Yes (Death, Other)
  Sender: FDA-Public Use
  Company Number: 163-21880-07120231

PATIENT
  Age: 72 Year
  Sex: Male

DRUGS (2)
  1. REVLIMID [Suspect]
     Indication: MULTIPLE MYELOMA
     Dosage: 25 MG, DAILY X21 DAYS, ORAL : 15 MG, DAILY X21 DAYS, ORAL
     Route: 048
     Dates: start: 20070921, end: 20071001
  2. REVLIMID [Suspect]
     Indication: MULTIPLE MYELOMA
     Dosage: 25 MG, DAILY X21 DAYS, ORAL : 15 MG, DAILY X21 DAYS, ORAL
     Route: 048
     Dates: start: 20071001, end: 20071001

REACTIONS (4)
  - AMYLOIDOSIS [None]
  - CARDIAC FAILURE CONGESTIVE [None]
  - NO THERAPEUTIC RESPONSE [None]
  - RENAL FAILURE CHRONIC [None]
